FAERS Safety Report 4578310-7 (Version None)
Quarter: 2005Q1

REPORT INFORMATION
  Report Type: 
  Country: None (occurrence: None)
  Receive Date: 20050204
  Receipt Date: 20050204
  Transmission Date: 20050727
  Serious: Yes (Other)
  Sender: FDA-Public Use
  Company Number: None

PATIENT
  Age: 56 Year
  Sex: Male
  Weight: 96.6162 kg

DRUGS (1)
  1. UNASYN [Suspect]
     Indication: CELLULITIS
     Dosage: 3 GM Q6H IV
     Route: 042
     Dates: start: 20050118, end: 20050204

REACTIONS (2)
  - DIZZINESS [None]
  - INFUSION RELATED REACTION [None]
